FAERS Safety Report 13924343 (Version 1)
Quarter: 2017Q3

REPORT INFORMATION
  Report Type: Spontaneous
  Country: IE (occurrence: IE)
  Receive Date: 20170831
  Receipt Date: 20170831
  Transmission Date: 20171127
  Serious: Yes (Other)
  Sender: FDA-Public Use
  Company Number: PHHY2017IE127472

PATIENT
  Age: 76 Year
  Sex: Male

DRUGS (1)
  1. QUETIAPINE. [Suspect]
     Active Substance: QUETIAPINE
     Indication: PARKINSON^S DISEASE
     Route: 065

REACTIONS (7)
  - Sexually inappropriate behaviour [Recovering/Resolving]
  - Hallucination [Recovering/Resolving]
  - Aggression [Recovering/Resolving]
  - Focal dyscognitive seizures [Recovering/Resolving]
  - Drug ineffective [Unknown]
  - Perseveration [Recovering/Resolving]
  - Catatonia [Recovering/Resolving]
